FAERS Safety Report 9393470 (Version 2)
Quarter: 2013Q4

REPORT INFORMATION
  Report Type: Report from Study
  Country: GB (occurrence: GB)
  Receive Date: 20130710
  Receipt Date: 20131107
  Transmission Date: 20140711
  Serious: Yes (Hospitalization, Other)
  Sender: FDA-Public Use
  Company Number: PHHY2013GB069407

PATIENT
  Age: 2 Year
  Sex: Female

DRUGS (53)
  1. VINORELBINE [Suspect]
     Indication: RHABDOMYOSARCOMA
     Dosage: 11 MG, QD
     Dates: start: 20120301
  2. DOXORUBICIN [Suspect]
     Indication: SARCOMA METASTATIC
     Dosage: 17 MG, ON DAYS 1 AND 2 OF CYCLE
     Route: 042
     Dates: start: 20110712
  3. LYOVAC COSMEGEN [Suspect]
     Indication: SARCOMA METASTATIC
     Dosage: 0.9 MG, ON DAY 1 OF CYCLE
     Route: 050
     Dates: start: 20110712
  4. LYOVAC COSMEGEN [Suspect]
     Dosage: 0.8 MG, ON DAY 1 OF CYCLE
     Route: 050
     Dates: start: 20110712
  5. AVASTIN [Suspect]
     Indication: SARCOMA METASTATIC
     Dosage: 65 MG, QD
     Route: 042
     Dates: start: 20110712
  6. AVASTIN [Suspect]
     Dosage: 130 MG, QD
     Route: 048
     Dates: start: 20120905
  7. MESNA [Suspect]
     Dosage: 4.41 G ONCE A DAY
     Route: 042
     Dates: start: 20110712
  8. MESNA [Suspect]
     Dosage: 1.9 G, A DAY
  9. MESNA [Suspect]
     Dosage: 2 G, A DAY
     Dates: start: 20110921
  10. CYCLOPHOSPHAMIDE [Suspect]
     Indication: RHABDOMYOSARCOMA
     Route: 048
     Dates: start: 20120301
  11. CYCLOPHOSPHAMIDE [Suspect]
     Dates: start: 20120623
  12. CYCLOPHOSPHAMIDE [Suspect]
     Dates: start: 20120907
  13. CYCLOPHOSPHAMIDE [Suspect]
     Dates: start: 20120511
  14. IFOSFAMIDE [Suspect]
     Indication: SARCOMA METASTATIC
     Dosage: 1.77 G, ON DAYS 1, 2 OF CYCLE
     Route: 042
     Dates: start: 20110712
  15. VINCRISTINE [Suspect]
     Indication: SARCOMA METASTATIC
     Dosage: 0.9 MG, ON DAY 1 OF CYCLE
     Route: 042
     Dates: start: 20110712
  16. PARACETAMOL [Concomitant]
     Dosage: 180 MG
     Route: 042
     Dates: start: 20110817
  17. PARACETAMOL [Concomitant]
     Route: 048
     Dates: start: 20110817
  18. ONDANSETRON [Concomitant]
     Dosage: 3 MG
     Route: 048
     Dates: start: 20110817
  19. ONDANSETRON [Concomitant]
     Dosage: 2.8 MG
     Route: 048
     Dates: start: 20110901, end: 20110907
  20. ONDANSETRON [Concomitant]
     Dosage: 5 MG
     Route: 048
     Dates: start: 20110927
  21. ONDANSETRON [Concomitant]
     Dosage: 3 MG, TID
     Dates: start: 20111125, end: 20111129
  22. ONDANSETRON [Concomitant]
     Dosage: 9 MG
     Dates: start: 20110712
  23. ONDANSETRON [Concomitant]
     Dosage: 6 MG
     Dates: start: 20120915
  24. FLUCONAZOLE [Concomitant]
     Route: 050
  25. LEVOMEPROMAZINE [Concomitant]
     Dosage: 2.6 MG
     Route: 050
     Dates: start: 20110713
  26. LEVOMEPROMAZINE [Concomitant]
     Dosage: 2.4 MG, BID
     Dates: start: 20111125, end: 20111127
  27. LEVOMEPROMAZINE [Concomitant]
     Route: 042
     Dates: start: 20110713
  28. LEVOMEPROMAZINE [Concomitant]
     Dates: start: 20111125, end: 20111127
  29. CO-TRIMOXAZOLE [Concomitant]
     Dosage: 240 MG
     Route: 048
     Dates: start: 20110716
  30. DOCUSATE SODIUM [Concomitant]
     Dosage: 37.5 MG, TID
     Route: 048
     Dates: start: 20110714
  31. DOCUSATE SODIUM [Concomitant]
     Dosage: 25 MG, TID
     Dates: start: 20111125
  32. DOCUSATE SODIUM [Concomitant]
     Dosage: 12.5 MG
     Dates: start: 20111230
  33. GENTAMICIN [Concomitant]
     Dosage: 90 MG, QD
     Route: 042
     Dates: start: 20110722, end: 20110722
  34. GENTAMICIN [Concomitant]
     Dosage: 83 MG, QD
     Route: 050
     Dates: start: 20110817, end: 20110824
  35. GENTAMICIN [Concomitant]
     Dosage: 82 MG, DAILY
     Dates: start: 20110907, end: 20110907
  36. PIPERACILLIN AND TAZOBACTAM [Concomitant]
     Dosage: 1150 MG, QID
     Route: 042
     Dates: start: 20110722, end: 20110722
  37. PIPERACILLIN AND TAZOBACTAM [Concomitant]
     Dosage: 1070 MG, DAILY
     Route: 042
     Dates: start: 20110817, end: 20110824
  38. PIPERACILLIN AND TAZOBACTAM [Concomitant]
     Dosage: 1050 MG, DAILY
     Dates: start: 20110907, end: 20110907
  39. MORPHINE SULFATE [Concomitant]
     Dosage: 1.3 MG
     Route: 048
     Dates: start: 20110817
  40. MOVICOL [Concomitant]
     Dates: start: 20110820
  41. MOVICOL [Concomitant]
     Dates: start: 20110901, end: 20110907
  42. MOVICOL [Concomitant]
     Dates: start: 20120326
  43. GRANULOCYTE COLONY-STIMULATING FACTOR NOS [Concomitant]
     Dosage: 60 UMOL, QD
     Dates: start: 20110822
  44. GRANULOCYTE COLONY-STIMULATING FACTOR NOS [Concomitant]
     Dosage: 60 UMOL, QD
     Route: 050
     Dates: start: 20110924
  45. GRANULOCYTE COLONY-STIMULATING FACTOR NOS [Concomitant]
     Route: 050
     Dates: start: 20110903
  46. EMOLLIENT BASE [Concomitant]
     Indication: PRODUCT USED FOR UNKNOWN INDICATION
     Dates: start: 20111012
  47. EMOLLIENT BASE [Concomitant]
     Dosage: REPORTED AS 50 AND 50 EMOLLIENT CREAM
     Dates: start: 20111012
  48. DIHYDROCODEINE [Concomitant]
     Dosage: 5 MG
     Route: 048
     Dates: start: 20110928
  49. CEFIXIME [Concomitant]
     Dosage: 100 MG
     Dates: start: 20120417
  50. TEMOZOLOMIDE [Concomitant]
     Dosage: 93 MG
     Dates: start: 20120915
  51. IRINOTECAN [Concomitant]
     Dosage: 3 MG
     Dates: start: 20120915
  52. IRINOTECAN [Concomitant]
     Dates: start: 20111012
  53. FILGRASTIM [Concomitant]
     Dosage: 60 UMOL, UNK
     Dates: start: 20110903

REACTIONS (4)
  - Mucosal inflammation [Recovered/Resolved]
  - Febrile neutropenia [Recovered/Resolved]
  - Candida test positive [Recovered/Resolved]
  - Epistaxis [Recovered/Resolved]
